FAERS Safety Report 10694595 (Version 1)
Quarter: 2015Q1

REPORT INFORMATION
  Report Type: Spontaneous
  Country: US (occurrence: US)
  Receive Date: 20150107
  Receipt Date: 20150107
  Transmission Date: 20150721
  Serious: No
  Sender: FDA-Public Use
  Company Number: US-009507513-1501USA000863

PATIENT
  Age: 23 Year
  Sex: Female
  Weight: 117.91 kg

DRUGS (1)
  1. NEXPLANON [Suspect]
     Active Substance: ETONOGESTREL
     Indication: CONTRACEPTION
     Dosage: 1 DF (ROD), EVERY 3 YEARS
     Route: 059
     Dates: start: 20141208, end: 20141231

REACTIONS (3)
  - Implant site erythema [Recovering/Resolving]
  - Implant site infection [Recovering/Resolving]
  - Implant site abscess [Recovering/Resolving]

NARRATIVE: CASE EVENT DATE: 201412
